FAERS Safety Report 25471251 (Version 4)
Quarter: 2025Q3

REPORT INFORMATION
  Report Type: Report from Study
  Country: KR (occurrence: KR)
  Receive Date: 20250624
  Receipt Date: 20250722
  Transmission Date: 20251021
  Serious: Yes (Other)
  Sender: NOVARTIS
  Company Number: KR-002147023-NVSC2025KR097578

PATIENT
  Age: 56 Year
  Sex: Female

DRUGS (9)
  1. BEOVU [Suspect]
     Active Substance: BROLUCIZUMAB-DBLL
     Indication: Diabetic retinal oedema
     Route: 031
     Dates: start: 20240710, end: 20240710
  2. BEOVU [Suspect]
     Active Substance: BROLUCIZUMAB-DBLL
     Route: 031
     Dates: start: 20241127, end: 20241127
  3. BEOVU [Suspect]
     Active Substance: BROLUCIZUMAB-DBLL
     Route: 031
     Dates: start: 20250127, end: 20250127
  4. LEVOFLOXACIN [Concomitant]
     Active Substance: LEVOFLOXACIN
     Indication: Evidence based treatment
     Route: 047
     Dates: start: 20240710, end: 20240714
  5. LEVOFLOXACIN [Concomitant]
     Active Substance: LEVOFLOXACIN
     Indication: Prophylaxis
     Route: 047
     Dates: start: 20241127, end: 20241201
  6. LEVOFLOXACIN [Concomitant]
     Active Substance: LEVOFLOXACIN
     Route: 047
     Dates: start: 20240814, end: 20240818
  7. Dobesel [Concomitant]
     Indication: Diabetic retinopathy
     Route: 065
     Dates: start: 20240603
  8. CARBOMER [Concomitant]
     Active Substance: CARBOMER
     Indication: Prophylaxis
     Route: 065
     Dates: start: 20250127
  9. Hyabak [Concomitant]
     Indication: Prophylaxis
     Route: 065
     Dates: start: 20240603

REACTIONS (1)
  - Idiopathic orbital inflammation [Recovered/Resolved]

NARRATIVE: CASE EVENT DATE: 20250324
